FAERS Safety Report 11517163 (Version 1)
Quarter: 2015Q3

REPORT INFORMATION
  Report Type: Spontaneous
  Country: US (occurrence: US)
  Receive Date: 20150917
  Receipt Date: 20150917
  Transmission Date: 20151125
  Serious: Yes (Life-Threatening, Hospitalization, Other)
  Sender: FDA-Public Use
  Company Number: US-GLAXOSMITHKLINE-US2015130933

PATIENT
  Age: 69 Year
  Sex: Female

DRUGS (3)
  1. ADVAIR DISKUS [Suspect]
     Active Substance: FLUTICASONE PROPIONATE\SALMETEROL XINAFOATE
     Dosage: 500/50 MCG
     Route: 055
     Dates: start: 2005, end: 201411
  2. SPIRIVA [Concomitant]
     Active Substance: TIOTROPIUM BROMIDE MONOHYDRATE
  3. ADVAIR DISKUS [Suspect]
     Active Substance: FLUTICASONE PROPIONATE\SALMETEROL XINAFOATE
     Indication: PRODUCT USED FOR UNKNOWN INDICATION
     Dosage: 100/50 MCG
     Route: 055
     Dates: end: 201411

REACTIONS (20)
  - Gastrointestinal infection [Recovered/Resolved]
  - Pulmonary function test decreased [Unknown]
  - Adverse event [Unknown]
  - Large intestinal ulcer [Recovered/Resolved]
  - Oesophageal disorder [Recovered/Resolved]
  - Limb discomfort [Recovered/Resolved]
  - Drooling [Recovered/Resolved]
  - Pancreatic disorder [Recovered/Resolved]
  - Spinal fracture [Unknown]
  - Tremor [Recovered/Resolved]
  - Gait disturbance [Recovered/Resolved]
  - Compression fracture [Unknown]
  - Gastrointestinal motility disorder [Recovered/Resolved]
  - Gastric disorder [Recovered/Resolved]
  - Pneumonia [Recovered/Resolved]
  - Seizure [Recovered/Resolved]
  - Drug hypersensitivity [Not Recovered/Not Resolved]
  - Pain [Unknown]
  - Abdominal pain upper [Recovered/Resolved]
  - Gastrointestinal pain [Recovered/Resolved]

NARRATIVE: CASE EVENT DATE: 2007
